FAERS Safety Report 20354417 (Version 1)
Quarter: 2022Q1

REPORT INFORMATION
  Report Type: Spontaneous
  Country: KW (occurrence: KW)
  Receive Date: 20220120
  Receipt Date: 20220120
  Transmission Date: 20220424
  Serious: Yes (Hospitalization, Other)
  Sender: FDA-Public Use
  Company Number: KW-ALKEM LABORATORIES LIMITED-KW-ALKEM-2021-07173

PATIENT
  Age: 13 Year
  Sex: Female

DRUGS (1)
  1. AZATHIOPRINE [Suspect]
     Active Substance: AZATHIOPRINE
     Indication: Product used for unknown indication
     Dosage: 2.5 MILLIGRAM/KILOGRAM
     Route: 065

REACTIONS (2)
  - Condition aggravated [Unknown]
  - Colitis ulcerative [Unknown]
